FAERS Safety Report 4963219-7 (Version None)
Quarter: 2006Q2

REPORT INFORMATION
  Report Type: 
  Country: None (occurrence: None)
  Receive Date: 20060405
  Receipt Date: 20051128
  Transmission Date: 20061013
  Serious: Yes (Hospitalization)
  Sender: FDA-Public Use
  Company Number: US-MERCK-0511USA04426

PATIENT
  Age: 56 Year
  Sex: Male
  Weight: 118 kg

DRUGS (1)
  1. VIOXX [Suspect]
     Indication: ARTHRALGIA
     Route: 048
     Dates: start: 20020129, end: 20030501

REACTIONS (9)
  - ARTERIAL OCCLUSIVE DISEASE [None]
  - CARDIOMEGALY [None]
  - CORONARY ARTERY DISEASE [None]
  - HYPERTENSION [None]
  - MYOCARDIAL INFARCTION [None]
  - PNEUMOCOCCAL SEPSIS [None]
  - POST-TRAUMATIC STRESS DISORDER [None]
  - PULMONARY MASS [None]
  - RENAL FAILURE CHRONIC [None]
